FAERS Safety Report 20297546 (Version 5)
Quarter: 2025Q1

REPORT INFORMATION
  Report Type: Spontaneous
  Country: US (occurrence: US)
  Receive Date: 20220105
  Receipt Date: 20250102
  Transmission Date: 20250409
  Serious: No
  Sender: ROCHE
  Company Number: US-ROCHE-2739935

PATIENT
  Age: 43 Year
  Sex: Male

DRUGS (2)
  1. HEMLIBRA [Suspect]
     Active Substance: EMICIZUMAB-KXWH
     Indication: Factor VIII deficiency
     Dosage: MAINTENANCE DOSE: INJECT HEMLIBRA 105 MG SUBCUTANEOUSLY WEEKLY
     Route: 058
     Dates: start: 202011
  2. HEMLIBRA [Suspect]
     Active Substance: EMICIZUMAB-KXWH
     Dosage: MAINTENANCE DOSE: INJECT HEMLIBRA 105 MG SUBCUTANEOUSLY WEEKLY?STRENGTH: 105MG/0.7ML
     Route: 058
     Dates: start: 202302

REACTIONS (3)
  - Haemorrhage [Recovered/Resolved]
  - Drug ineffective [Unknown]
  - Haemorrhage [Not Recovered/Not Resolved]

NARRATIVE: CASE EVENT DATE: 20201221
